FAERS Safety Report 9097251 (Version 2)
Quarter: 2013Q3

REPORT INFORMATION
  Report Type: Report from Study
  Country: US (occurrence: US)
  Receive Date: 20130212
  Receipt Date: 20130830
  Transmission Date: 20140515
  Serious: Yes (Hospitalization, Other)
  Sender: FDA-Public Use
  Company Number: PHHO2010US17969

PATIENT
  Age: 85 Year
  Sex: Male
  Weight: 87.21 kg

DRUGS (7)
  1. CHLORTALIDONE [Suspect]
  2. PLACEBO [Suspect]
     Indication: CARDIOVASCULAR DISORDER
     Route: 048
     Dates: start: 20100602, end: 20100924
  3. EXFORGE [Concomitant]
     Dosage: 1 DF, QD (10/320 QD)
     Dates: end: 20100924
  4. ASPIRIN [Concomitant]
  5. PLAVIX [Concomitant]
  6. METOPROLOL [Concomitant]
  7. LIPITOR [Concomitant]

REACTIONS (4)
  - Dehydration [Recovered/Resolved]
  - Orthostatic hypotension [Recovered/Resolved]
  - Asthenia [Recovered/Resolved]
  - Dizziness [Recovered/Resolved]
